FAERS Safety Report 9213174 (Version 2)
Quarter: 2013Q2

REPORT INFORMATION
  Report Type: Spontaneous
  Country: JP (occurrence: JP)
  Receive Date: 20130405
  Receipt Date: 20130626
  Transmission Date: 20140414
  Serious: Yes (Death, Other)
  Sender: FDA-Public Use
  Company Number: JP-JNJFOC-20130400571

PATIENT
  Age: 64 Year
  Sex: Female

DRUGS (31)
  1. FINIBAX [Suspect]
     Indication: PRODUCT USED FOR UNKNOWN INDICATION
     Route: 042
     Dates: start: 20100125, end: 20100204
  2. SPRYCEL [Suspect]
     Indication: ACUTE LYMPHOCYTIC LEUKAEMIA
     Route: 048
     Dates: start: 20100112, end: 20100420
  3. SPRYCEL [Suspect]
     Indication: ACUTE LYMPHOCYTIC LEUKAEMIA
     Route: 048
     Dates: start: 20091222, end: 20100108
  4. SPRYCEL [Suspect]
     Indication: ACUTE LYMPHOCYTIC LEUKAEMIA
     Route: 048
     Dates: start: 20091010, end: 20091208
  5. FUNGIZONE [Suspect]
     Indication: PROPHYLAXIS
     Route: 042
     Dates: start: 20091009, end: 20091030
  6. FUNGIZONE [Suspect]
     Indication: PROPHYLAXIS
     Route: 042
     Dates: start: 20100109, end: 20100217
  7. MAXIPIME [Concomitant]
     Route: 065
     Dates: start: 20091008, end: 20091014
  8. ROCEPHIN [Concomitant]
     Route: 065
     Dates: start: 20100113, end: 20100120
  9. ALBUMIN [Concomitant]
     Route: 065
     Dates: start: 20100129, end: 20100131
  10. AMIKACIN SULFATE [Concomitant]
     Route: 065
     Dates: start: 20091116
  11. OMEPRAL [Concomitant]
     Route: 065
  12. ZYLORIC [Concomitant]
     Route: 065
  13. MUCOSTA [Concomitant]
     Route: 065
  14. GASMOTIN [Concomitant]
     Route: 065
  15. URSO [Concomitant]
     Route: 065
     Dates: start: 20100108
  16. LASIX [Concomitant]
     Indication: PROPHYLAXIS
     Route: 042
     Dates: start: 20100108
  17. LASIX [Concomitant]
     Indication: PROPHYLAXIS
     Route: 042
     Dates: start: 20091117, end: 20091123
  18. LASIX [Concomitant]
     Indication: PROPHYLAXIS
     Route: 042
     Dates: start: 20091124, end: 20091205
  19. ROHYPNOL [Concomitant]
     Route: 065
  20. VENOGLOBULIN [Concomitant]
     Route: 065
     Dates: start: 20100220, end: 20100222
  21. FUNGUARD [Concomitant]
     Route: 065
     Dates: start: 20100308, end: 20100409
  22. AZACTAM [Concomitant]
     Route: 065
     Dates: start: 20100226, end: 20100305
  23. VFEND [Concomitant]
     Route: 065
     Dates: start: 20100218, end: 20100308
  24. BACTRAMIN [Concomitant]
     Route: 065
  25. SENNA [Concomitant]
     Route: 065
  26. NEU-UP [Concomitant]
     Indication: WHITE BLOOD CELL COUNT DECREASED
     Route: 065
     Dates: start: 20091024, end: 20091029
  27. POLYMYXIN B [Concomitant]
     Route: 065
  28. NEO-MINOPHAGEN C [Concomitant]
     Route: 065
     Dates: start: 20091109, end: 20091130
  29. LEUCOVORIN [Concomitant]
     Indication: DRUG TOXICITY PROPHYLAXIS
     Route: 042
     Dates: start: 20091112, end: 20091112
  30. LEUCOVORIN [Concomitant]
     Indication: DRUG TOXICITY PROPHYLAXIS
     Route: 042
     Dates: start: 20091111, end: 20091111
  31. DIAMOX [Concomitant]
     Indication: PROPHYLAXIS
     Route: 042
     Dates: start: 20091111, end: 20091116

REACTIONS (3)
  - Death [Fatal]
  - Gastrointestinal haemorrhage [Recovered/Resolved]
  - Liver disorder [Not Recovered/Not Resolved]
